FAERS Safety Report 6030447-1 (Version None)
Quarter: 2009Q1

REPORT INFORMATION
  Report Type: 
  Country: None (occurrence: None)
  Receive Date: 20090107
  Receipt Date: 20081230
  Transmission Date: 20090719
  Serious: Yes (Other)
  Sender: FDA-Public Use
  Company Number: US-BAYER-200841743NA

PATIENT
  Sex: Female

DRUGS (1)
  1. TRASYLOL [Suspect]
     Indication: CORONARY ARTERY BYPASS
     Route: 042
     Dates: start: 20040202

REACTIONS (13)
  - ANHEDONIA [None]
  - ANXIETY [None]
  - DEPRESSION [None]
  - DIALYSIS [None]
  - EMOTIONAL DISTRESS [None]
  - FEAR OF DEATH [None]
  - INJURY [None]
  - NERVOUSNESS [None]
  - PAIN [None]
  - PHYSICAL DISABILITY [None]
  - POST PROCEDURAL COMPLICATION [None]
  - RENAL FAILURE [None]
  - UNEVALUABLE EVENT [None]
